FAERS Safety Report 8638859 (Version 4)
Quarter: 2013Q1

REPORT INFORMATION
  Report Type: Spontaneous
  Country: US (occurrence: US)
  Receive Date: 20120627
  Receipt Date: 20130215
  Transmission Date: 20140127
  Serious: Yes (Other)
  Sender: FDA-Public Use
  Company Number: US-VIROPHARMA INCORPORATED-20120531CINRY3011

PATIENT
  Sex: Female
  Weight: 69.46 kg

DRUGS (5)
  1. CINRYZE (C1 ESTERASE INHIBITOR (HUMAN)) [Suspect]
     Indication: HEREDITARY ANGIOEDEMA
     Dates: start: 200903, end: 201206
  2. CINRYZE (C1 ESTERASE INHIBITOR (HUMAN)) [Suspect]
     Dates: start: 201206
  3. BERINERT [Concomitant]
     Indication: HEREDITARY ANGIOEDEMA
     Dosage: UNKNOWN
  4. BABY ASPIRIN [Concomitant]
     Indication: PREGNANCY
     Route: 048
     Dates: start: 2012
  5. PRENATAL VITAMINS [Concomitant]
     Indication: PREGNANCY
     Dosage: UNKNOWN
     Route: 048
     Dates: start: 2012

REACTIONS (8)
  - Abortion spontaneous [Recovered/Resolved]
  - Exposure during pregnancy [Recovered/Resolved]
  - Hereditary angioedema [Unknown]
  - Angioedema [Unknown]
  - Vomiting in pregnancy [Unknown]
  - Condition aggravated [Unknown]
  - Inappropriate schedule of drug administration [Not Recovered/Not Resolved]
  - Incorrect drug administration rate [Not Recovered/Not Resolved]
